FAERS Safety Report 20033276 (Version 3)
Quarter: 2022Q4

REPORT INFORMATION
  Report Type: Spontaneous
  Country: DE (occurrence: DE)
  Receive Date: 20211104
  Receipt Date: 20221107
  Transmission Date: 20230112
  Serious: Yes (Hospitalization, Other)
  Sender: FDA-Public Use
  Company Number: DE-ADRED-06854-01

PATIENT
  Age: 79 Year
  Sex: Female

DRUGS (18)
  1. MIRTAZAPINE [Suspect]
     Active Substance: MIRTAZAPINE
     Indication: Product used for unknown indication
     Dosage: 30 MILLIGRAM(30 MG, 0-0-0-0.5, TABLET)
     Route: 048
  2. PREDNISOLONE [Suspect]
     Active Substance: PREDNISOLONE
     Indication: Product used for unknown indication
     Dosage: 10 MILLIGRAM (10 MG, 1-0-0-0, TABLET)
     Route: 048
  3. EDOXABAN [Suspect]
     Active Substance: EDOXABAN
     Indication: Product used for unknown indication
     Dosage: 30 MILLIGRAM (30 MG, 1-0-0-0, TABLET)
     Route: 048
  4. FOSFOMYCIN [Suspect]
     Active Substance: FOSFOMYCIN
     Indication: Product used for unknown indication
     Dosage: 3 GRAM (3 G, GRANULES)
     Route: 048
  5. RAMIPRIL [Concomitant]
     Active Substance: RAMIPRIL
     Dosage: 5 MILLIGRAM (5 MG, 0-0-0.5-0, TABLET)
     Route: 048
  6. NALOXONE HYDROCHLORIDE\OXYCODONE HYDROCHLORIDE [Concomitant]
     Active Substance: NALOXONE HYDROCHLORIDE\OXYCODONE HYDROCHLORIDE
     Dosage: UNK (9/4.5 MG, 1-0-1-0, RETARD-TABLET)
     Route: 048
  7. METOPROLOL [Concomitant]
     Active Substance: METOPROLOL
     Dosage: 47.5MILLIGRAM(47.5 MG, 1.5-0-1.5-0,RETARD-TABLET)
     Route: 048
  8. METOPROLOL [Concomitant]
     Active Substance: METOPROLOL
     Dosage: 95MILLIGRAM(95 MG, 1-0-1-0, RETARD-TABLET)
     Route: 048
  9. PANTOPRAZOLE SODIUM [Concomitant]
     Active Substance: PANTOPRAZOLE SODIUM
     Dosage: 40 MILLIGRAM (40 MG, TABLET)
     Route: 048
  10. MIRTAZAPINE [Concomitant]
     Active Substance: MIRTAZAPINE
     Dosage: 30 MILLIGRAM (30 MG, TABLET)
     Route: 048
  11. MOVICOL [Concomitant]
     Active Substance: POLYETHYLENE GLYCOL 3350\POTASSIUM CHLORIDE\SODIUM BICARBONATE\SODIUM CHLORIDE
     Dosage: UNK (IN CASE OF CONSTIPATION, POWDER)
     Route: 048
  12. MCP STADA [Concomitant]
     Dosage: 10 MILLIGRAM (10 MG, TABLET)
     Route: 048
  13. ATORVASTATIN [Concomitant]
     Active Substance: ATORVASTATIN
     Dosage: 80 MILLIGRAM (80 MG, 0-0-1-0, TABLET)
     Route: 048
  14. LEVOTHYROXINE SODIUM [Concomitant]
     Active Substance: LEVOTHYROXINE SODIUM
     Dosage: 100 MICROGRAM (100 ?G, 1-0-0-0, TABLET)
     Route: 048
  15. DRONEDARONE [Concomitant]
     Active Substance: DRONEDARONE
     Dosage: 400 MILLIGRAM (400 MG, 1-0-1-0, TABLET)
     Route: 048
  16. TORSEMIDE [Concomitant]
     Active Substance: TORSEMIDE
     Dosage: 10 MILLIGRAM (10 MG, 1-0-0-0, TABLET)
     Route: 048
  17. OXYCODONE [Concomitant]
     Active Substance: OXYCODONE
     Dosage: 5 MILLIGRAM (5 MG, 1-0-1-0, CAPSULE)
     Route: 048
  18. ESCITALOPRAM [Concomitant]
     Active Substance: ESCITALOPRAM OXALATE
     Dosage: 5 MILLIGRAM (5 MG, TABLET)
     Route: 048

REACTIONS (8)
  - Hypokalaemia [Unknown]
  - General physical health deterioration [Unknown]
  - Gastroenteritis clostridial [Unknown]
  - Dyspnoea [Unknown]
  - Anaemia [Unknown]
  - Hypotension [Unknown]
  - Diarrhoea [Unknown]
  - Somnolence [Unknown]
